FAERS Safety Report 8336377-4 (Version None)
Quarter: 2012Q2

REPORT INFORMATION
  Report Type: 
  Country: None (occurrence: None)
  Receive Date: 20120504
  Receipt Date: 20120427
  Transmission Date: 20120825
  Serious: Yes (Hospitalization)
  Sender: FDA-Public Use
  Company Number: PHHY2012JP036406

PATIENT
  Sex: Male

DRUGS (3)
  1. TASIGNA [Suspect]
     Indication: CHRONIC MYELOID LEUKAEMIA
     Dosage: 400 MG,
     Route: 048
     Dates: start: 20090617, end: 20090730
  2. TASIGNA [Suspect]
     Dosage: 200 MG,
     Route: 048
     Dates: start: 20090821, end: 20110211
  3. LANSOPRAZOLE [Concomitant]
     Dosage: 15 MG,
     Route: 048
     Dates: start: 20071102, end: 20091127

REACTIONS (1)
  - PNEUMONIA [None]
